FAERS Safety Report 4349596-9 (Version None)
Quarter: 2004Q1

REPORT INFORMATION
  Report Type: 
  Country: None (occurrence: None)
  Receive Date: 20040329
  Receipt Date: 20031204
  Transmission Date: 20041129
  Serious: No
  Sender: FDA-Public Use
  Company Number: USA031253987

PATIENT
  Age: 14 Year
  Sex: Male
  Weight: 61 kg

DRUGS (7)
  1. STRATTERA [Suspect]
     Indication: ATTENTION DEFICIT/HYPERACTIVITY DISORDER
     Dosage: 60 MG
     Dates: start: 20031022, end: 20031119
  2. ZYPREXA [Concomitant]
  3. LITHIUM CARBONATE [Concomitant]
  4. COGENTIN [Concomitant]
  5. LUVOX [Concomitant]
  6. GEODON [Concomitant]
  7. BENADRYL [Concomitant]

REACTIONS (2)
  - MYDRIASIS [None]
  - PSYCHOTIC DISORDER [None]
